FAERS Safety Report 17625376 (Version 2)
Quarter: 2025Q1

REPORT INFORMATION
  Report Type: Report from Study
  Country: DE (occurrence: DE)
  Receive Date: 20200403
  Receipt Date: 20250331
  Transmission Date: 20250408
  Serious: Yes (Death, Congenital Anomaly, Other)
  Sender: AUROBINDO
  Company Number: DE-TEVA-2020-DE-1203934

PATIENT
  Sex: Female

DRUGS (1)
  1. VALSARTAN [Suspect]
     Active Substance: VALSARTAN
     Indication: Product used for unknown indication
     Route: 064

REACTIONS (8)
  - Oligohydramnios [Fatal]
  - Anuria [Fatal]
  - Cranial sutures widening [Fatal]
  - Pulmonary hypoplasia [Fatal]
  - Oliguria [Fatal]
  - Congenital renal disorder [Fatal]
  - Foetal disorder [Fatal]
  - Foetal exposure during pregnancy [Unknown]
